FAERS Safety Report 10585954 (Version 1)
Quarter: 2014Q4

REPORT INFORMATION
  Report Type: Report from Study
  Country: US (occurrence: US)
  Receive Date: 20141114
  Receipt Date: 20141114
  Transmission Date: 20150529
  Serious: Yes (Hospitalization)
  Sender: FDA-Public Use
  Company Number: US-ACTELION-A-US2014-108389

PATIENT
  Age: 55 Year
  Sex: Female

DRUGS (2)
  1. VENTAVIS [Suspect]
     Active Substance: ILOPROST
     Indication: PULMONARY ARTERIAL HYPERTENSION
     Dosage: 5 MCG, 6-9 TIMES DAILY
     Route: 055
     Dates: start: 20110303
  2. SILDENAFIL. [Concomitant]
     Active Substance: SILDENAFIL
     Dosage: 60 MG, TID

REACTIONS (1)
  - Upper respiratory tract infection [Recovered/Resolved]

NARRATIVE: CASE EVENT DATE: 20141017
